FAERS Safety Report 7626387-4 (Version None)
Quarter: 2011Q3

REPORT INFORMATION
  Report Type: 
  Country: None (occurrence: None)
  Receive Date: 20110721
  Receipt Date: 20110718
  Transmission Date: 20111222
  Serious: Yes (Life-Threatening, Hospitalization, Other)
  Sender: FDA-Public Use
  Company Number: PHFR2011GB02753

PATIENT
  Sex: Female
  Weight: 104 kg

DRUGS (4)
  1. CLOZAPINE [Suspect]
     Indication: SCHIZOPHRENIA
     Dosage: 300 MG/DAY
     Route: 048
     Dates: start: 20110329
  2. QUETIAPINE [Suspect]
     Dosage: 800 MG/DAY
     Route: 048
  3. QUETIAPINE [Suspect]
     Dosage: 800 MG/DAY
     Route: 048
  4. WARFARIN SODIUM [Concomitant]
     Dosage: UNK DF, UNK

REACTIONS (4)
  - ASTHMA [None]
  - DYSPNOEA [None]
  - PULMONARY EMBOLISM [None]
  - RESPIRATORY DISORDER [None]
